FAERS Safety Report 15622732 (Version 1)
Quarter: 2018Q4

REPORT INFORMATION
  Report Type: Spontaneous
  Country: US (occurrence: US)
  Receive Date: 20181115
  Receipt Date: 20181115
  Transmission Date: 20190205
  Serious: Yes (Other)
  Sender: FDA-Public Use
  Company Number: US-PFIZER INC-2018458960

PATIENT
  Age: 33 Year
  Sex: Female

DRUGS (12)
  1. NOREPINEPHRINE BITARTRATE. [Suspect]
     Active Substance: NOREPINEPHRINE BITARTRATE
     Dosage: UNK
  2. HYDROXOCOBALAMIN [Suspect]
     Active Substance: HYDROXOCOBALAMIN
     Dosage: 5 G, UNK
  3. AMYGDALIN [Concomitant]
     Active Substance: AMYGDALIN
     Dosage: 40 DF, UNK (INTENTIONALLY INGESTING 40 CAPSULES OF 500MG AMYGDALIN (20 G)
     Route: 048
  4. MAGNESIUM SULFATE. [Suspect]
     Active Substance: MAGNESIUM SULFATE
     Indication: ELECTROCARDIOGRAM QT PROLONGED
  5. LORAZEPAM. [Suspect]
     Active Substance: LORAZEPAM
     Indication: AGITATION
     Dosage: 2 MG, UNK
  6. HYDROXOCOBALAMIN [Suspect]
     Active Substance: HYDROXOCOBALAMIN
     Dosage: 5 G, UNK
  7. SODIUM THIOSULFATE [Suspect]
     Active Substance: SODIUM THIOSULFATE
     Dosage: 25 G, UNK
  8. ACTIVATED CHARCOAL. [Suspect]
     Active Substance: ACTIVATED CHARCOAL
  9. MAGNESIUM SULFATE. [Suspect]
     Active Substance: MAGNESIUM SULFATE
     Indication: AGITATION
     Dosage: 2 G, UNK
  10. LORAZEPAM. [Suspect]
     Active Substance: LORAZEPAM
     Indication: ELECTROCARDIOGRAM QT PROLONGED
  11. SODIUM BICARBONATE. [Suspect]
     Active Substance: SODIUM BICARBONATE
  12. VASOPRESSIN. [Suspect]
     Active Substance: VASOPRESSIN
     Dosage: UNK

REACTIONS (1)
  - Pneumonia [Unknown]
